FAERS Safety Report 4998058-4 (Version None)
Quarter: 2006Q2

REPORT INFORMATION
  Report Type: 
  Country: None (occurrence: None)
  Receive Date: 20060510
  Receipt Date: 20060118
  Transmission Date: 20061013
  Serious: Yes (Death, Hospitalization, Other)
  Sender: FDA-Public Use
  Company Number: US-MERCK-0601USA02230

PATIENT
  Age: 69 Year
  Sex: Male
  Weight: 91 kg

DRUGS (12)
  1. VIOXX [Suspect]
     Indication: ARTHRALGIA
     Route: 048
     Dates: start: 20001001, end: 20040101
  2. PLAVIX [Concomitant]
     Indication: ANTICOAGULANT THERAPY
     Route: 065
     Dates: start: 20021101, end: 20040101
  3. LIPITOR [Concomitant]
     Route: 065
     Dates: start: 20030601, end: 20030701
  4. PAXIL [Concomitant]
     Indication: DEPRESSION
     Route: 065
     Dates: start: 20021201, end: 20040101
  5. ZOLOFT [Concomitant]
     Indication: DEPRESSION
     Route: 065
     Dates: start: 20021201, end: 20040101
  6. ANUCORT [Concomitant]
     Indication: GASTROINTESTINAL DISORDER
     Route: 065
  7. LISINOPRIL-BC [Concomitant]
     Indication: HYPERTENSION
     Route: 065
  8. LOTENSIN [Concomitant]
     Indication: HYPERTENSION
     Route: 065
  9. TRIMOX [Concomitant]
     Indication: INFECTION
     Route: 065
  10. COUMADIN [Concomitant]
     Indication: THROMBOSIS
     Route: 065
  11. DILANTIN [Concomitant]
     Indication: CONVULSION
     Route: 065
  12. TEGRETOL [Concomitant]
     Indication: CONVULSION
     Route: 065

REACTIONS (8)
  - ARTERIOSCLEROSIS [None]
  - CAROTID ARTERY STENOSIS [None]
  - CEREBROVASCULAR ACCIDENT [None]
  - CONVULSION [None]
  - CORONARY ARTERY SURGERY [None]
  - DEPRESSION [None]
  - HERPES ZOSTER [None]
  - THROMBOSIS [None]
